FAERS Safety Report 8014373-4 (Version None)
Quarter: 2011Q4

REPORT INFORMATION
  Report Type: 
  Country: None (occurrence: None)
  Receive Date: 20111229
  Receipt Date: 20111223
  Transmission Date: 20120403
  Serious: Yes (Hospitalization)
  Sender: FDA-Public Use
  Company Number: PHHY2010US80008

PATIENT
  Sex: Male
  Weight: 51.578 kg

DRUGS (1)
  1. EXJADE [Suspect]
     Indication: MYELODYSPLASTIC SYNDROME
     Dosage: 500 MG, DAILY
     Route: 048
     Dates: start: 20091201, end: 20101119

REACTIONS (3)
  - BACK PAIN [None]
  - FAT TISSUE INCREASED [None]
  - STAPHYLOCOCCAL INFECTION [None]
